FAERS Safety Report 10191543 (Version 1)
Quarter: 2014Q2

REPORT INFORMATION
  Report Type: Spontaneous
  Country: US (occurrence: US)
  Receive Date: 20140523
  Receipt Date: 20140523
  Transmission Date: 20141212
  Serious: No
  Sender: FDA-Public Use
  Company Number: US-009507513-1405USA007412

PATIENT
  Sex: Female

DRUGS (1)
  1. GRASTEK [Suspect]
     Indication: SEASONAL ALLERGY
     Dosage: 2800 BAU/ONE TABLET
     Route: 060
     Dates: start: 201405

REACTIONS (2)
  - Conjunctivitis [Recovered/Resolved]
  - Wrong technique in drug usage process [Unknown]
